FAERS Safety Report 21923733 (Version 2)
Quarter: 2023Q1

REPORT INFORMATION
  Report Type: Spontaneous
  Country: US (occurrence: US)
  Receive Date: 20230130
  Receipt Date: 20230331
  Transmission Date: 20230418
  Serious: Yes (Death)
  Sender: FDA-Public Use
  Company Number: US-JNJFOC-20230158892

PATIENT
  Age: 70 Year
  Sex: Female

DRUGS (42)
  1. OPSUMIT [Suspect]
     Active Substance: MACITENTAN
     Indication: Pulmonary arterial hypertension
     Route: 048
     Dates: start: 20191228, end: 20230102
  2. ALYQ [Concomitant]
     Active Substance: TADALAFIL
  3. AMLODIPINE [Concomitant]
     Active Substance: AMLODIPINE BESYLATE
  4. ATENOLOL [Concomitant]
     Active Substance: ATENOLOL
  5. ATORVASTATIN [Concomitant]
     Active Substance: ATORVASTATIN
     Route: 048
  6. VITAL D RX [Concomitant]
     Dosage: 1 MG TABLET
  7. DIALYVITE [Concomitant]
     Active Substance: ASCORBIC ACID\BIOTIN\CALCIUM PANTOTHENATE\COBALAMIN\FOLIC ACID\NIACINAMIDE\PYRIDOXINE HYDROCHLORIDE\
     Dosage: 1 TABLET BY MOUTH DAILY
  8. CALCIUM CARBONATE [Concomitant]
     Active Substance: CALCIUM CARBONATE
     Dosage: CHEW 2 TABLETS
  9. SENSIPAR [Concomitant]
     Active Substance: CINACALCET HYDROCHLORIDE
     Route: 048
  10. SENSIPAR [Concomitant]
     Active Substance: CINACALCET HYDROCHLORIDE
     Route: 048
  11. FLEXERIL [Concomitant]
     Active Substance: CYCLOBENZAPRINE HYDROCHLORIDE
     Route: 048
  12. BENTYL [Concomitant]
     Active Substance: DICYCLOMINE HYDROCHLORIDE
     Route: 048
  13. DUREZOL [Concomitant]
     Active Substance: DIFLUPREDNATE
     Dosage: INSTILL 1 DROP TO RIGHT EYE 4 TIMES DAILY
  14. ELIQUIS [Concomitant]
     Active Substance: APIXABAN
  15. ERGOCALCIFEROL [Concomitant]
     Active Substance: ERGOCALCIFEROL
     Dosage: TAKE 50,000 UNITS BY MOUTH ONCE A WEEK
     Route: 048
  16. GABAPENTIN [Concomitant]
     Active Substance: GABAPENTIN
     Dates: start: 20220608
  17. APRESOLINE HYDROCHLORIDE [Concomitant]
     Active Substance: HYDRALAZINE HYDROCHLORIDE
  18. LOPERAMIDE [Concomitant]
     Active Substance: LOPERAMIDE
     Dosage: 2 TABLET WITH FIRST DIARRHEA AND 1 TABLET WITH EACH DIARRHEA EPISODES, MAXIMUN 8 TABLETS PER DAY
     Route: 048
     Dates: start: 20210208
  19. MAGNESIUM OXIDE [Concomitant]
     Active Substance: MAGNESIUM OXIDE
     Route: 048
  20. MECLIZINE [Concomitant]
     Active Substance: MECLIZINE HYDROCHLORIDE
     Indication: Dizziness
     Dates: start: 20220912
  21. MEGESTROL [Concomitant]
     Active Substance: MEGESTROL
     Dosage: 40 MG/ML
  22. LOPRESSOR [Concomitant]
     Active Substance: METOPROLOL TARTRATE
     Route: 048
     Dates: start: 20220920
  23. LOPRESSOR [Concomitant]
     Active Substance: METOPROLOL TARTRATE
     Route: 048
  24. MINOXIDIL [Concomitant]
     Active Substance: MINOXIDIL
     Route: 048
  25. MULTAQ [Concomitant]
     Active Substance: DRONEDARONE
     Dosage: WITH MEALS
     Dates: start: 20220404
  26. OMEPRAZOLE [Concomitant]
     Active Substance: OMEPRAZOLE
     Route: 048
     Dates: start: 20221028
  27. OMEPRAZOLE [Concomitant]
     Active Substance: OMEPRAZOLE
     Route: 048
  28. PREDNISONE [Concomitant]
     Active Substance: PREDNISONE
     Dosage: 4 TABLET IN 3 DAYS, 3 TABLET IN 3 DAYS, 2 TABLET IN 3 DAYS, THEN 1 TABLET IN 3 DAYS
  29. ROPINIROLE [Concomitant]
     Active Substance: ROPINIROLE
     Route: 048
  30. SEVELAMER [Concomitant]
     Active Substance: SEVELAMER
     Dosage: 1600 MG 3 TIMES A DAY WITH MEALS AND 2 WITH SNACKS
     Route: 048
  31. DEMADEX [Concomitant]
     Active Substance: TORSEMIDE
  32. TREPROSTINIL DIOLAMINE [Concomitant]
     Active Substance: TREPROSTINIL DIOLAMINE
     Dosage: TAKE 0.125 MG BY MOUTH  3  TIMES A DAY
  33. TYLENOL [Concomitant]
     Active Substance: ACETAMINOPHEN
     Indication: Pain
     Route: 048
     Dates: start: 20211210
  34. TYLENOL [Concomitant]
     Active Substance: ACETAMINOPHEN
     Indication: Headache
  35. TYLENOL [Concomitant]
     Active Substance: ACETAMINOPHEN
     Indication: Pyrexia
  36. LOMOTIL [Concomitant]
     Active Substance: ATROPINE SULFATE\DIPHENOXYLATE HYDROCHLORIDE
     Dosage: 4 TIMES A DAY AS NEEDED FOR DIARRHEA
  37. DRONABINOL [Concomitant]
     Active Substance: DRONABINOL
     Dosage: THERAPY START DATE  04/FEB/2022
  38. EMLA [Concomitant]
     Active Substance: LIDOCAINE\PRILOCAINE
     Dates: start: 20150808
  39. TADALAFIL [Concomitant]
     Active Substance: TADALAFIL
     Route: 048
  40. DULCOLAX (BISACODYL) [Concomitant]
     Active Substance: BISACODYL
     Indication: Constipation
     Dosage: THERAPY START DATE 23/FEB/2023
     Route: 054
  41. HYDROMORPHONE [Concomitant]
     Active Substance: HYDROMORPHONE
     Dosage: EVERY 15 MIN PRN, OTHER PAIN/SHORTNESS OF BREATH , STARTING ON MON 02-JAN-2023
     Route: 042
  42. LORAZEPAM [Concomitant]
     Active Substance: LORAZEPAM
     Indication: Anxiety
     Dosage: 1MG INTRAVENOUS, EVERY 15 MIN, PRN?THERAPY START DATE 02/JAN/2023

REACTIONS (1)
  - Cardiac arrest [Fatal]
